FAERS Safety Report 4714471-4 (Version None)
Quarter: 2005Q3

REPORT INFORMATION
  Report Type: 
  Country: None (occurrence: None)
  Receive Date: 20050714
  Receipt Date: 20050706
  Transmission Date: 20060218
  Serious: Yes (Hospitalization, Other)
  Sender: FDA-Public Use
  Company Number: PHBS2005JP09711

PATIENT
  Age: 46 Year
  Sex: Male

DRUGS (4)
  1. CYCLOSPORINE [Suspect]
     Indication: RENAL TRANSPLANT
     Dosage: 100 MG/D
     Route: 065
     Dates: end: 20031226
  2. AZATHIOPRINE [Suspect]
     Indication: RENAL TRANSPLANT
     Dosage: 50 MG/D
     Route: 065
     Dates: end: 20031121
  3. PREDNISOLONE [Suspect]
     Indication: RENAL TRANSPLANT
     Dosage: 10 MG/D
     Dates: end: 20031121
  4. PREDNISOLONE [Suspect]
     Dosage: 5 MG/D
     Route: 048
     Dates: start: 20031122

REACTIONS (19)
  - ANTERIOR CHAMBER CELL [None]
  - BLOOD CREATININE INCREASED [None]
  - BLOOD UREA INCREASED [None]
  - C-REACTIVE PROTEIN INCREASED [None]
  - CATARACT SUBCAPSULAR [None]
  - CORNEAL DEPOSITS [None]
  - CORNEAL LESION [None]
  - CYTOMEGALOVIRUS ANTIGEN POSITIVE [None]
  - CYTOMEGALOVIRUS CHORIORETINITIS [None]
  - EYE HAEMORRHAGE [None]
  - HAEMODIALYSIS [None]
  - HAEMOGLOBIN DECREASED [None]
  - KIDNEY TRANSPLANT REJECTION [None]
  - PHLEBITIS [None]
  - RETINAL VASCULAR DISORDER [None]
  - UVEITIS [None]
  - VISION BLURRED [None]
  - VISUAL ACUITY REDUCED [None]
  - VITREOUS OPACITIES [None]
